FAERS Safety Report 8556568-7 (Version None)
Quarter: 2012Q3

REPORT INFORMATION
  Report Type: 
  Country: None (occurrence: None)
  Receive Date: 20120801
  Receipt Date: 20120724
  Transmission Date: 20120928
  Serious: Yes (Hospitalization)
  Sender: FDA-Public Use
  Company Number: US-BAYER-2012-075736

PATIENT
  Age: 51 Year
  Sex: Female
  Weight: 68.027 kg

DRUGS (9)
  1. DROSPIRENONE AND ETHINYL ESTRADIOL [Suspect]
  2. LORAZEPAM [Concomitant]
     Dosage: 1 MG, UNK
  3. HORMONES NOS [Concomitant]
  4. PAMPRIN TAB [Concomitant]
     Dosage: UNK UNK, PRN
     Route: 048
  5. DRUGS FOR OBSTRUCTIVE AIRWAY DISEASES [Concomitant]
     Dosage: 2 PUFF(S), EVERY 6 HOURS
  6. OXYCODONE HCL [Concomitant]
     Dosage: 5 MG - 325 MG
  7. CIPROFLAXACIN [Concomitant]
     Dosage: 500 MG, EVERY 12 HOURS FOR 7 DAYS
  8. YASMIN [Suspect]
  9. IBUPROFEN [Concomitant]
     Dosage: 800 MG, PRN

REACTIONS (1)
  - DEEP VEIN THROMBOSIS [None]
